FAERS Safety Report 6535980-1 (Version None)
Quarter: 2010Q1

REPORT INFORMATION
  Report Type: 
  Country: None (occurrence: None)
  Receive Date: 20100113
  Receipt Date: 20100108
  Transmission Date: 20100710
  Serious: Yes (Death, Hospitalization)
  Sender: FDA-Public Use
  Company Number: B0607749A

PATIENT
  Sex: Male

DRUGS (2)
  1. LAMICTAL [Suspect]
     Indication: EPILEPSY
     Route: 048
  2. CARBAMAZEPINE [Suspect]
     Indication: EPILEPSY
     Dosage: 600MG TWICE PER DAY
     Route: 048

REACTIONS (3)
  - CONDITION AGGRAVATED [None]
  - DYSPNOEA [None]
  - VOMITING [None]
